FAERS Safety Report 10668574 (Version 1)
Quarter: 2014Q4

REPORT INFORMATION
  Report Type: Spontaneous
  Country: GB (occurrence: GB)
  Receive Date: 20141222
  Receipt Date: 20141222
  Transmission Date: 20150529
  Serious: Yes (Other)
  Sender: FDA-Public Use
  Company Number: PHHY2014GB162846

PATIENT
  Age: 82 Year
  Sex: Female

DRUGS (6)
  1. TIOTROPIUM [Concomitant]
     Active Substance: TIOTROPIUM
  2. BUMETANIDE. [Concomitant]
     Active Substance: BUMETANIDE
  3. CEFTRIAXONE. [Suspect]
     Active Substance: CEFTRIAXONE
     Indication: CELLULITIS
     Dosage: 2 G, UNK
     Route: 042
     Dates: start: 20141128, end: 20141128
  4. ZOPICLONE [Concomitant]
     Active Substance: ZOPICLONE
  5. SALBUTAMOL [Concomitant]
     Active Substance: ALBUTEROL
     Route: 055
  6. MIRTAZAPINE. [Concomitant]
     Active Substance: MIRTAZAPINE

REACTIONS (3)
  - Urticaria [Recovering/Resolving]
  - Pruritus [Recovering/Resolving]
  - Dry throat [Recovering/Resolving]

NARRATIVE: CASE EVENT DATE: 20141128
